FAERS Safety Report 6406138-1 (Version None)
Quarter: 2009Q4

REPORT INFORMATION
  Report Type: 
  Country: None (occurrence: None)
  Receive Date: 20091016
  Receipt Date: 20091016
  Transmission Date: 20100525
  Serious: Yes (Other)
  Sender: FDA-Public Use
  Company Number: None

PATIENT
  Age: 17 Year
  Sex: Female
  Weight: 53.5244 kg

DRUGS (2)
  1. YASMIN [Suspect]
     Indication: POLYCYSTIC OVARIES
     Dosage: 28 DAY PACK ONE DAILY PO
     Route: 048
     Dates: start: 20070103, end: 20080807
  2. YAZ [Suspect]
     Dosage: 28 DAY PACK ONE DAILY PO
     Route: 048
     Dates: start: 20080807, end: 20081001

REACTIONS (1)
  - OEDEMA PERIPHERAL [None]
